FAERS Safety Report 9651105 (Version 1)
Quarter: 2013Q4

REPORT INFORMATION
  Report Type: Spontaneous
  Country: US (occurrence: US)
  Receive Date: 20131029
  Receipt Date: 20131029
  Transmission Date: 20140711
  Serious: No
  Sender: FDA-Public Use
  Company Number: US-PFIZER INC-2013306308

PATIENT
  Age: 41 Year
  Sex: Male
  Weight: 68.03 kg

DRUGS (2)
  1. VIAGRA [Suspect]
     Indication: ERECTILE DYSFUNCTION
     Dosage: 100 MG, AS NEEDED
     Route: 048
     Dates: start: 201307, end: 20131023
  2. VIAGRA [Suspect]
     Dosage: 100 MG, AS NEEDED
     Route: 048
     Dates: start: 201307, end: 20131023

REACTIONS (4)
  - Product taste abnormal [Unknown]
  - Product counterfeit [Unknown]
  - Drug effect incomplete [Unknown]
  - Drug ineffective [Unknown]
